FAERS Safety Report 13760468 (Version 1)
Quarter: 2017Q3

REPORT INFORMATION
  Report Type: Spontaneous
  Country: US (occurrence: US)
  Receive Date: 20170717
  Receipt Date: 20170717
  Transmission Date: 20171127
  Serious: No
  Sender: FDA-Public Use
  Company Number: US-VALIDUS PHARMACEUTICALS LLC-US-2016VAL002066

PATIENT
  Sex: Male
  Weight: 103.4 kg

DRUGS (1)
  1. BENAZEPRIL HYDROCHLORIDE, HYDROCHLOROTHIAZIDE (BENAZEPRIL HYDROCHLORIDE, HYDROCHLOROTHIAZIDE) UNKNOWN [Suspect]
     Active Substance: BENAZEPRIL HYDROCHLORIDE\HYDROCHLOROTHIAZIDE
     Indication: BLOOD PRESSURE INCREASED
     Dosage: 20-25 MG, QD
     Route: 048

REACTIONS (1)
  - Performance status decreased [Unknown]
